FAERS Safety Report 8841798 (Version 1)
Quarter: 2012Q4

REPORT INFORMATION
  Report Type: 
  Country: MX (occurrence: MX)
  Receive Date: 20121016
  Receipt Date: 20121016
  Transmission Date: 20130627
  Serious: Yes (Other)
  Sender: FDA-Public Use
  Company Number: MX-JNJFOC-20121004892

PATIENT
  Age: 36 Year
  Sex: Female
  Weight: 72 kg

DRUGS (5)
  1. REMICADE [Suspect]
     Indication: PSORIASIS
     Route: 042
  2. REMICADE [Suspect]
     Indication: PSORIASIS
     Route: 042
     Dates: start: 20120922
  3. HALOPERIDOL [Concomitant]
     Route: 065
  4. LEVOMEPROMAZINE [Concomitant]
     Route: 065
  5. METHOTREXATE [Concomitant]
     Route: 065

REACTIONS (2)
  - Skin ulcer [Recovering/Resolving]
  - Rash maculo-papular [Recovering/Resolving]
